FAERS Safety Report 8611811-0 (Version None)
Quarter: 2012Q3

REPORT INFORMATION
  Report Type: 
  Country: None (occurrence: None)
  Receive Date: 20120822
  Receipt Date: 20120813
  Transmission Date: 20120928
  Serious: Yes (Other)
  Sender: FDA-Public Use
  Company Number: US-BAXTER-2012BAX014434

PATIENT

DRUGS (1)
  1. TISSEEL VH [Suspect]
     Dates: start: 20120501, end: 20120501

REACTIONS (2)
  - HEART RATE IRREGULAR [None]
  - HAEMORRHAGE [None]
